FAERS Safety Report 17402722 (Version 1)
Quarter: 2020Q1

REPORT INFORMATION
  Report Type: Spontaneous
  Country: US (occurrence: US)
  Receive Date: 20200210
  Receipt Date: 20200210
  Transmission Date: 20200409
  Serious: No
  Sender: FDA-Public Use
  Company Number: None

PATIENT
  Age: 63 Year
  Sex: Female
  Weight: 85.05 kg

DRUGS (9)
  1. VITAMIN D [Concomitant]
     Active Substance: VITAMIN D NOS
  2. OMEGA 3 [Concomitant]
     Active Substance: OMEGA-3 FATTY ACIDS
  3. CARDURA [Concomitant]
     Active Substance: DOXAZOSIN MESYLATE
  4. DONEPEZIL 10 MG ORAL TABLET [Suspect]
     Active Substance: DONEPEZIL
     Indication: COGNITIVE DISORDER
     Dosage: ?          QUANTITY:30 TABLET(S);?
     Route: 048
     Dates: start: 20191222, end: 20191228
  5. VITAMIN B12 [Concomitant]
     Active Substance: CYANOCOBALAMIN
  6. PROBIOTICS [Concomitant]
     Active Substance: PROBIOTICS NOS
  7. ASPIRIN. [Concomitant]
     Active Substance: ASPIRIN
  8. COZAAR [Concomitant]
     Active Substance: LOSARTAN POTASSIUM
  9. LANTUS SOLOSTAR [Concomitant]
     Active Substance: INSULIN GLARGINE

REACTIONS (6)
  - Nausea [None]
  - Presyncope [None]
  - Insomnia [None]
  - Dizziness [None]
  - Paralysis [None]
  - Decreased appetite [None]

NARRATIVE: CASE EVENT DATE: 20191228
